FAERS Safety Report 23066609 (Version 3)
Quarter: 2023Q4

REPORT INFORMATION
  Report Type: Spontaneous
  Country: JP (occurrence: JP)
  Receive Date: 20231016
  Receipt Date: 20231203
  Transmission Date: 20240110
  Serious: Yes (Other)
  Sender: FDA-Public Use
  Company Number: JP-BEH-2023164065

PATIENT
  Sex: Male

DRUGS (2)
  1. HUMAN IMMUNOGLOBULIN G [Suspect]
     Active Substance: HUMAN IMMUNOGLOBULIN G
     Indication: Encephalopathy
     Dosage: UNK
     Route: 042
  2. METHYLPREDNISOLONE [Concomitant]
     Active Substance: METHYLPREDNISOLONE
     Indication: Encephalopathy
     Dosage: UNK

REACTIONS (11)
  - Seizure [Unknown]
  - Pyrexia [Unknown]
  - Haemophagocytic lymphohistiocytosis [Unknown]
  - Pancytopenia [Unknown]
  - Serum ferritin increased [Unknown]
  - No adverse event [Unknown]
  - Off label use [Unknown]
  - Myositis [Unknown]
  - Cerebral calcification [Unknown]
  - Pulmonary hypertension [Unknown]
  - Pneumonia [Unknown]
